FAERS Safety Report 19685211 (Version 1)
Quarter: 2021Q3

REPORT INFORMATION
  Report Type: Spontaneous
  Country: US (occurrence: US)
  Receive Date: 20210811
  Receipt Date: 20210811
  Transmission Date: 20211014
  Serious: No
  Sender: FDA-Public Use
  Company Number: US-GLAXOSMITHKLINE-US2021AMR168317

PATIENT
  Sex: Female

DRUGS (6)
  1. BENLYSTA [Suspect]
     Active Substance: BELIMUMAB
     Indication: POLYARTHRITIS
  2. BENLYSTA [Suspect]
     Active Substance: BELIMUMAB
     Indication: PARAESTHESIA
  3. BENLYSTA [Suspect]
     Active Substance: BELIMUMAB
     Indication: SYSTEMIC LUPUS ERYTHEMATOSUS
     Dosage: 200 MG/ML, WE
     Route: 058
  4. BENLYSTA [Suspect]
     Active Substance: BELIMUMAB
     Indication: SPINAL OSTEOARTHRITIS
  5. BENLYSTA [Suspect]
     Active Substance: BELIMUMAB
     Indication: EPILEPSY
  6. BENLYSTA [Suspect]
     Active Substance: BELIMUMAB
     Indication: ARTHRITIS

REACTIONS (3)
  - Device use issue [Unknown]
  - Off label use [Unknown]
  - Product dose omission issue [Unknown]
